FAERS Safety Report 4308051-2 (Version None)
Quarter: 2004Q1

REPORT INFORMATION
  Report Type: 
  Country: None (occurrence: None)
  Receive Date: 20040301
  Receipt Date: 20030415
  Transmission Date: 20041129
  Serious: No
  Sender: FDA-Public Use
  Company Number: US-BRISTOL-MYERS SQUIBB COMPANY-12240875

PATIENT
  Age: 50 Year
  Sex: Male
  Weight: 95 kg

DRUGS (5)
  1. GLUCOPHAGE [Suspect]
     Indication: BLOOD GLUCOSE INCREASED
     Dosage: DOSE INCREASED ON 31-MAR-2003 TO 2 TABS/DAY
     Route: 048
     Dates: start: 20030324, end: 20030413
  2. HYDROCHLOROTHIAZIDE [Concomitant]
  3. GLYBURIDE [Concomitant]
  4. MONOPRIL [Concomitant]
  5. MILK OF MAGNESIA TAB [Concomitant]

REACTIONS (2)
  - FAECES HARD [None]
  - SKIN DISORDER [None]
